FAERS Safety Report 21452953 (Version 1)
Quarter: 2022Q4

REPORT INFORMATION
  Report Type: Spontaneous
  Country: CN (occurrence: None)
  Receive Date: 20221013
  Receipt Date: 20221013
  Transmission Date: 20230113
  Serious: Yes (Other)
  Sender: FDA-Public Use
  Company Number: CN-ROCHE-3198150

PATIENT
  Age: 57 Year
  Sex: Female
  Weight: 48.4 kg

DRUGS (7)
  1. HERCEPTIN [Suspect]
     Active Substance: TRASTUZUMAB
     Indication: Breast neoplasm
     Route: 041
     Dates: start: 20220913
  2. CARBOPLATIN [Suspect]
     Active Substance: CARBOPLATIN
     Indication: Breast neoplasm
     Route: 041
     Dates: start: 20220913, end: 20220913
  3. CARBOPLATIN [Suspect]
     Active Substance: CARBOPLATIN
     Route: 041
     Dates: start: 20220914
  4. PACLITAXEL [Suspect]
     Active Substance: PACLITAXEL
     Indication: Breast neoplasm
     Route: 041
     Dates: start: 20220913
  5. SODIUM CHLORIDE [Concomitant]
     Active Substance: SODIUM CHLORIDE
     Indication: Breast neoplasm
     Route: 041
     Dates: start: 20220913, end: 20220913
  6. SODIUM CHLORIDE [Concomitant]
     Active Substance: SODIUM CHLORIDE
     Route: 041
     Dates: start: 20220913, end: 20220913
  7. DEXTROSE [Concomitant]
     Active Substance: DEXTROSE
     Indication: Breast neoplasm
     Route: 041
     Dates: start: 20220913, end: 20220914

REACTIONS (1)
  - Myelosuppression [Unknown]

NARRATIVE: CASE EVENT DATE: 20220919
